FAERS Safety Report 6134984-0 (Version None)
Quarter: 2009Q1

REPORT INFORMATION
  Report Type: 
  Country: None (occurrence: None)
  Receive Date: 20090327
  Receipt Date: 20090317
  Transmission Date: 20090719
  Serious: Yes (Other)
  Sender: FDA-Public Use
  Company Number: US-JNJFOC-20081202642

PATIENT
  Sex: Female

DRUGS (1)
  1. REMICADE [Suspect]
     Indication: RHEUMATOID ARTHRITIS
     Dosage: THE PATIENT ALSO HAD AN INFUSION ON 31-JUL-08 AND 12-SEP-08
     Route: 042

REACTIONS (4)
  - BRONCHITIS [None]
  - EAR DISORDER [None]
  - HERPES ZOSTER [None]
  - POST HERPETIC NEURALGIA [None]
